FAERS Safety Report 4678668-4 (Version None)
Quarter: 2005Q2

REPORT INFORMATION
  Report Type: 
  Country: None (occurrence: None)
  Receive Date: 20050527
  Receipt Date: 20050523
  Transmission Date: 20051028
  Serious: Yes (Death)
  Sender: FDA-Public Use
  Company Number: 163-20785-04110556

PATIENT
  Age: 65 Year
  Sex: Male

DRUGS (1)
  1. THALOMID [Suspect]
     Indication: MYELOFIBROSIS
     Dosage: 50 MG, DAILY, ORAL
     Route: 048
     Dates: start: 20040921, end: 20041008

REACTIONS (5)
  - ACUTE LEUKAEMIA [None]
  - DEPRESSION [None]
  - DISEASE PROGRESSION [None]
  - DRUG INTOLERANCE [None]
  - LETHARGY [None]
